FAERS Safety Report 25279208 (Version 1)
Quarter: 2025Q2

REPORT INFORMATION
  Report Type: Spontaneous
  Country: PT (occurrence: PT)
  Receive Date: 20250507
  Receipt Date: 20250507
  Transmission Date: 20250717
  Serious: Yes (Other)
  Sender: VIIV
  Company Number: None

PATIENT

DRUGS (4)
  1. VOCABRIA [Suspect]
     Active Substance: CABOTEGRAVIR SODIUM
     Indication: HIV infection
     Dosage: 600 MG, Q2M (600 MG CABOTEGRAVIR + 900 MG RILPIVIRINE EVERY 2 MONTHS (AFTER INDUCTION PERIOD))
     Route: 030
     Dates: start: 20250121
  2. VOCABRIA [Suspect]
     Active Substance: CABOTEGRAVIR SODIUM
     Route: 030
     Dates: start: 20250219, end: 20250219
  3. RILPIVIRINE [Suspect]
     Active Substance: RILPIVIRINE
     Indication: HIV infection
     Dosage: 900 MG, Q2M (600 MG CABOTEGRAVIR + 900 MG RILPIVIRINE EVERY 2 MONTHS (AFTER INDUCTION PERIOD))
     Route: 030
     Dates: start: 20250121
  4. RILPIVIRINE [Suspect]
     Active Substance: RILPIVIRINE
     Route: 030
     Dates: start: 20250219, end: 20250219

REACTIONS (1)
  - Pruritus [Recovered/Resolved]

NARRATIVE: CASE EVENT DATE: 20250219
